APPROVED DRUG PRODUCT: UNI-DUR
Active Ingredient: THEOPHYLLINE
Strength: 400MG
Dosage Form/Route: TABLET, EXTENDED RELEASE;ORAL
Application: A089822 | Product #001
Applicant: SCHERING CORP SUB SCHERING PLOUGH CORP
Approved: Jan 4, 1995 | RLD: No | RS: No | Type: DISCN